FAERS Safety Report 5604625-7 (Version None)
Quarter: 2008Q1

REPORT INFORMATION
  Report Type: 
  Country: None (occurrence: None)
  Receive Date: 20080124
  Receipt Date: 20080124
  Transmission Date: 20080703
  Serious: Yes (Hospitalization)
  Sender: FDA-Public Use
  Company Number: None

PATIENT
  Age: 56 Year
  Sex: Female
  Weight: 62.1428 kg

DRUGS (1)
  1. LEVAQUIN [Suspect]
     Indication: URINARY TRACT INFECTION
     Dosage: 500MG ONCE A DAY PO
     Route: 048
     Dates: start: 20080104, end: 20080104

REACTIONS (6)
  - GENERALISED ERYTHEMA [None]
  - PHARYNGEAL OEDEMA [None]
  - PRURITUS [None]
  - SKIN WARM [None]
  - SWELLING FACE [None]
  - URTICARIA [None]
